FAERS Safety Report 26203385 (Version 1)
Quarter: 2025Q4

REPORT INFORMATION
  Report Type: Spontaneous
  Country: US (occurrence: None)
  Receive Date: 20251223
  Receipt Date: 20251223
  Transmission Date: 20260118
  Serious: Yes (Life-Threatening, Disabling)
  Sender: FDA-CTU
  Company Number: None

PATIENT
  Age: 53 Year
  Sex: Male
  Weight: 85.5 kg

DRUGS (6)
  1. FINASTERIDE [Suspect]
     Active Substance: FINASTERIDE
     Indication: Androgenetic alopecia
     Dosage: 1 TABLET AT BEDIME ORAL
     Route: 048
     Dates: start: 20250626, end: 20250721
  2. PROPRANOLOL [Concomitant]
     Active Substance: PROPRANOLOL HYDROCHLORIDE
  3. GABAPENTIN [Concomitant]
     Active Substance: GABAPENTIN
  4. One a Day men^s multivitamin [Concomitant]
  5. DIETARY SUPPLEMENT [Concomitant]
     Active Substance: DIETARY SUPPLEMENT
  6. MAGNESIUM [Concomitant]
     Active Substance: MAGNESIUM

REACTIONS (15)
  - Semen viscosity abnormal [None]
  - Panic attack [None]
  - Heart rate increased [None]
  - Suicidal ideation [None]
  - Fatigue [None]
  - Muscular weakness [None]
  - Therapy cessation [None]
  - Tremor [None]
  - Insomnia [None]
  - Muscular weakness [None]
  - Anxiety [None]
  - Blood pressure measurement [None]
  - Depression [None]
  - Impaired work ability [None]
  - Muscle twitching [None]

NARRATIVE: CASE EVENT DATE: 20250721
